FAERS Safety Report 23060446 (Version 1)
Quarter: 2023Q4

REPORT INFORMATION
  Report Type: Spontaneous
  Country: US (occurrence: US)
  Receive Date: 20231012
  Receipt Date: 20231012
  Transmission Date: 20240110
  Serious: No
  Sender: FDA-Public Use
  Company Number: US-SA-2023SA306124

PATIENT
  Age: 19 Year
  Sex: Male

DRUGS (2)
  1. ELOCTATE [Suspect]
     Active Substance: EFMOROCTOCOG ALFA
     Dosage: 4250 U (+/- 10%)
     Route: 065
  2. ELOCTATE [Suspect]
     Active Substance: EFMOROCTOCOG ALFA
     Dosage: 4250 U (+/- 10%)
     Route: 065

REACTIONS (2)
  - Traumatic haemorrhage [Recovered/Resolved]
  - Tendon injury [Recovered/Resolved]
